FAERS Safety Report 6501230-5 (Version None)
Quarter: 2009Q4

REPORT INFORMATION
  Report Type: 
  Country: None (occurrence: None)
  Receive Date: 20091216
  Receipt Date: 20091009
  Transmission Date: 20100525
  Serious: No
  Sender: FDA-Public Use
  Company Number: A0811704A

PATIENT
  Age: 55 Year
  Sex: Male

DRUGS (2)
  1. NICOTINE POLACRILEX [Suspect]
     Indication: DRUG USE FOR UNKNOWN INDICATION
     Route: 060
  2. NICOTINE POLACRILEX [Suspect]
     Indication: DRUG USE FOR UNKNOWN INDICATION

REACTIONS (7)
  - FACIAL PAIN [None]
  - GLOSSODYNIA [None]
  - INTENTIONAL DRUG MISUSE [None]
  - OEDEMA MOUTH [None]
  - ORAL PAIN [None]
  - SWELLING FACE [None]
  - SWOLLEN TONGUE [None]
